FAERS Safety Report 24217520 (Version 2)
Quarter: 2024Q3

REPORT INFORMATION
  Report Type: Spontaneous
  Country: CA (occurrence: CA)
  Receive Date: 20240816
  Receipt Date: 20240912
  Transmission Date: 20241016
  Serious: Yes (Other)
  Sender: PFIZER
  Company Number: CA-PFIZER INC-202400237023

PATIENT
  Age: 9 Year
  Sex: Female

DRUGS (3)
  1. METHOTREXATE SODIUM [Suspect]
     Active Substance: METHOTREXATE SODIUM
     Indication: Crohn^s disease
     Dosage: UNK
     Dates: start: 2024
  2. METHOTREXATE SODIUM [Suspect]
     Active Substance: METHOTREXATE SODIUM
     Dosage: 14.6 MG/KG (ESCALATED NOW TO 14.6MG/KG EVERY 4 WEEKS)
     Dates: start: 2024
  3. INFLIXIMAB [Concomitant]
     Active Substance: INFLIXIMAB
     Indication: Crohn^s disease
     Dosage: 15 MG/KG, EVERY 4 WEEKS

REACTIONS (6)
  - Growth failure [Unknown]
  - Condition aggravated [Unknown]
  - Blood albumin decreased [Unknown]
  - Anorectal disorder [Not Recovered/Not Resolved]
  - Off label use [Unknown]
  - Off label use [Unknown]

NARRATIVE: CASE EVENT DATE: 20240101
